FAERS Safety Report 25478499 (Version 3)
Quarter: 2025Q3

REPORT INFORMATION
  Report Type: Spontaneous
  Country: JP (occurrence: JP)
  Receive Date: 20250625
  Receipt Date: 20250810
  Transmission Date: 20251020
  Serious: Yes (Hospitalization, Other)
  Sender: ALEXION PHARMACEUTICALS
  Company Number: JP-ASTRAZENECA-250061903_010520_P_1

PATIENT
  Sex: Female

DRUGS (3)
  1. FULVESTRANT [Suspect]
     Active Substance: FULVESTRANT
     Dosage: 500 MILLIGRAM, Q4W
  2. FULVESTRANT [Suspect]
     Active Substance: FULVESTRANT
  3. TRUQAP [Suspect]
     Active Substance: CAPIVASERTIB
     Dosage: A 4-DAY-ON-FOLLOWED-BY-3-DAY-OFF SCHEDULE

REACTIONS (3)
  - Diabetic ketoacidosis [Recovered/Resolved]
  - Insulin resistance [Unknown]
  - Nausea [Unknown]
